FAERS Safety Report 15277783 (Version 1)
Quarter: 2018Q3

REPORT INFORMATION
  Report Type: Report from Study
  Country: ES (occurrence: ES)
  Receive Date: 20180814
  Receipt Date: 20180814
  Transmission Date: 20181010
  Serious: Yes (Hospitalization, Other)
  Sender: FDA-Public Use
  Company Number: ES-PFIZER INC-2018322479

PATIENT
  Age: 66 Year
  Sex: Female

DRUGS (5)
  1. TRANKIMAZIN [Suspect]
     Active Substance: ALPRAZOLAM
     Indication: INSOMNIA
     Dosage: 0.5 MG, 1X/DAY
     Route: 048
     Dates: start: 20110921, end: 20171210
  2. CITALOPRAM [Interacting]
     Active Substance: CITALOPRAM HYDROBROMIDE
     Indication: DEPRESSION
     Dosage: 20 MG, 1X/DAY
     Route: 048
     Dates: start: 20150319, end: 20171210
  3. FENTANYL. [Interacting]
     Active Substance: FENTANYL
     Indication: MONONEUROPATHY
     Dosage: 16 UG, 1X/DAY
     Route: 062
     Dates: start: 20171115, end: 20171210
  4. TRAMADOL/PARACETAMOL [Interacting]
     Active Substance: ACETAMINOPHEN\TRAMADOL
     Indication: MONONEUROPATHY
     Dosage: 1 DF, 1X/DAY
     Route: 048
     Dates: start: 20171115, end: 20171210
  5. ORFIDAL [Interacting]
     Active Substance: LORAZEPAM
     Indication: INSOMNIA
     Dosage: 2 MG, 1X/DAY
     Route: 048
     Dates: start: 20110921, end: 20171210

REACTIONS (3)
  - Depressed level of consciousness [Recovered/Resolved]
  - Drug interaction [Unknown]
  - Product use in unapproved indication [Unknown]

NARRATIVE: CASE EVENT DATE: 20171207
